FAERS Safety Report 5422616-6 (Version None)
Quarter: 2007Q3

REPORT INFORMATION
  Report Type: 
  Country: None (occurrence: None)
  Receive Date: 20070730
  Receipt Date: 20061004
  Transmission Date: 20080115
  Serious: Yes (Hospitalization, Other)
  Sender: FDA-Public Use
  Company Number: 200615183BWH

PATIENT
  Sex: Female

DRUGS (1)
  1. AVELOX [Suspect]
     Indication: RESPIRATORY DISORDER
     Dosage: 400 MG, TOTAL, ORAL
     Route: 048
     Dates: start: 20060804

REACTIONS (1)
  - ANAPHYLACTIC SHOCK [None]
